FAERS Safety Report 8474452-4 (Version None)
Quarter: 2012Q2

REPORT INFORMATION
  Report Type: 
  Country: None (occurrence: None)
  Receive Date: 20120628
  Receipt Date: 20120625
  Transmission Date: 20120825
  Serious: Yes (Other)
  Sender: FDA-Public Use
  Company Number: PHHY2010CA84378

PATIENT
  Sex: Female

DRUGS (5)
  1. FIORINAL-C [Concomitant]
  2. SYNTHROID [Concomitant]
  3. SANDOSTATIN LAR [Suspect]
     Indication: POST GASTRIC SURGERY SYNDROME
     Dosage: 20 MG, EVERY 3 WEEKS
     Route: 030
     Dates: start: 20041120
  4. OMEPRAZOLE (PRISOLEC) [Concomitant]
  5. FLEXERIL [Concomitant]

REACTIONS (7)
  - MUSCULOSKELETAL STIFFNESS [None]
  - HYPOGLYCAEMIA [None]
  - ASTHENIA [None]
  - URINARY TRACT INFECTION [None]
  - BURNING SENSATION [None]
  - JOINT SWELLING [None]
  - STRESS [None]
